FAERS Safety Report 16557218 (Version 1)
Quarter: 2019Q3

REPORT INFORMATION
  Report Type: Spontaneous
  Country: US (occurrence: US)
  Receive Date: 20190711
  Receipt Date: 20190711
  Transmission Date: 20191004
  Serious: No
  Sender: FDA-Public Use
  Company Number: US-BAYER-2019-129799

PATIENT
  Age: 63 Year
  Sex: Male
  Weight: 100 kg

DRUGS (1)
  1. ALEVE [Suspect]
     Active Substance: NAPROXEN SODIUM
     Indication: BACK PAIN
     Dosage: 2 DF, PRN
     Route: 048
     Dates: start: 201906

REACTIONS (3)
  - Pruritus [Recovered/Resolved]
  - Urticaria [Recovered/Resolved]
  - Extra dose administered [None]

NARRATIVE: CASE EVENT DATE: 201906
